FAERS Safety Report 7328568-6 (Version None)
Quarter: 2011Q1

REPORT INFORMATION
  Report Type: 
  Country: None (occurrence: None)
  Receive Date: 20110225
  Receipt Date: 20110225
  Transmission Date: 20110831
  Serious: Yes (Life-Threatening, Hospitalization, Other)
  Sender: FDA-Public Use
  Company Number: None

PATIENT
  Age: 41 Year
  Sex: Female
  Weight: 59.8748 kg

DRUGS (3)
  1. ULTRAM [Suspect]
     Indication: ANALGESIC THERAPY
     Dosage: 50 MG. 3 X PER DAY PO
     Route: 048
     Dates: start: 20080901, end: 20080908
  2. ULTRAM [Suspect]
     Indication: ANALGESIC THERAPY
     Dosage: 50 MG. 3 X PER DAY PO
     Route: 048
     Dates: start: 20110215, end: 20110221
  3. LORTAB [Concomitant]

REACTIONS (2)
  - CONVULSIVE THRESHOLD LOWERED [None]
  - CONVULSION [None]
